FAERS Safety Report 9506110 (Version 1)
Quarter: 2013Q1

REPORT INFORMATION
  Report Type: Spontaneous
  Country: US (occurrence: None)
  Receive Date: 20130301
  Receipt Date: 20130301
  Transmission Date: 20140127
  Serious: Yes (Other)
  Sender: FDA-Public Use
  Company Number: RB-39010-2012

PATIENT
  Sex: Male

DRUGS (1)
  1. SUBOXONE [Suspect]
     Indication: DRUG ABUSE
     Dates: start: 20120330, end: 20120330

REACTIONS (5)
  - Therapy naive [None]
  - Abdominal discomfort [None]
  - Substance abuse [None]
  - Drug abuse [None]
  - Wrong technique in drug usage process [None]
